FAERS Safety Report 5651952-3 (Version None)
Quarter: 2008Q1

REPORT INFORMATION
  Report Type: 
  Country: None (occurrence: None)
  Receive Date: 20080305
  Receipt Date: 20080219
  Transmission Date: 20080703
  Serious: Yes (Other)
  Sender: FDA-Public Use
  Company Number: PE-PFIZER INC-2008014480

PATIENT
  Age: 38 Year
  Sex: Male

DRUGS (3)
  1. LYRICA [Suspect]
     Indication: DIABETIC NEUROPATHY
     Route: 048
  2. TRAMAL [Suspect]
     Route: 048
     Dates: start: 20070501, end: 20071101
  3. INSULIN [Concomitant]
     Dates: start: 20030101

REACTIONS (1)
  - TRANSAMINASES INCREASED [None]
